FAERS Safety Report 22648477 (Version 1)
Quarter: 2023Q2

REPORT INFORMATION
  Report Type: Report from Study
  Country: US (occurrence: US)
  Receive Date: 20230628
  Receipt Date: 20230628
  Transmission Date: 20230721
  Serious: No
  Sender: FDA-Public Use
  Company Number: US-002147023-NVSC2023US146877

PATIENT
  Age: 67 Year
  Sex: Female

DRUGS (2)
  1. KISQALI [Suspect]
     Active Substance: RIBOCICLIB
     Indication: Cellulitis
     Dosage: 600 MG, QD
     Route: 048
     Dates: start: 20230308
  2. KISQALI [Suspect]
     Active Substance: RIBOCICLIB
     Dosage: 400 MG, 21D (THEN 7D OFF)
     Route: 065

REACTIONS (1)
  - Neutrophil count decreased [Unknown]
